FAERS Safety Report 14177898 (Version 2)
Quarter: 2017Q4

REPORT INFORMATION
  Report Type: Report from Study
  Country: IN (occurrence: IN)
  Receive Date: 20171110
  Receipt Date: 20171129
  Transmission Date: 20180321
  Serious: Yes (Hospitalization)
  Sender: FDA-Public Use
  Company Number: PHHY2017IN164447

PATIENT
  Age: 56 Year
  Sex: Male

DRUGS (2)
  1. TASIGNA [Suspect]
     Active Substance: NILOTINIB
     Indication: CHRONIC MYELOID LEUKAEMIA
     Dosage: 400 MG, BID
     Route: 048
     Dates: start: 20170531, end: 20171008
  2. TASIGNA [Suspect]
     Active Substance: NILOTINIB
     Dosage: 400 MG, BID
     Route: 048
     Dates: start: 20171120

REACTIONS (1)
  - Electrocardiogram QT prolonged [Recovered/Resolved with Sequelae]

NARRATIVE: CASE EVENT DATE: 20171008
